FAERS Safety Report 7917782-4 (Version None)
Quarter: 2011Q4

REPORT INFORMATION
  Report Type: 
  Country: None (occurrence: None)
  Receive Date: 20111116
  Receipt Date: 20111103
  Transmission Date: 20120403
  Serious: Yes (Other)
  Sender: FDA-Public Use
  Company Number: US-ROCHE-GNE322387

PATIENT
  Sex: Female

DRUGS (22)
  1. HYDROCHLOROTHIAZIDE [Concomitant]
     Indication: HYPERTENSION
  2. PULMICORT NEBULIZER [Concomitant]
     Indication: ASTHMA
     Dosage: UNK
  3. ALBUTEROL [Concomitant]
     Indication: ASTHMA
     Dosage: UNK
  4. SYMBICORT [Concomitant]
     Indication: ASTHMA
  5. OMALIZUMAB [Suspect]
     Indication: ASTHMA
     Dosage: 375 MG, Q2W
     Dates: start: 20110408
  6. METHYLDOPA [Concomitant]
     Indication: HYPERTENSION
     Dosage: O
     Route: 048
     Dates: start: 20110601
  7. XOPENEX [Concomitant]
     Indication: ASTHMA
     Dosage: UNK
     Dates: start: 20090101
  8. SINGULAIR [Concomitant]
     Indication: ASTHMA
     Dosage: UNK
     Route: 048
     Dates: start: 20090101
  9. ALVESCO [Concomitant]
     Indication: ASTHMA
  10. VITAMIN B-12 [Concomitant]
     Route: 048
     Dates: start: 20110923
  11. NYSTATIN [Concomitant]
     Route: 061
     Dates: start: 20110923
  12. FISH OIL [Concomitant]
     Indication: ASTHMA
  13. VITAMIN D [Concomitant]
     Indication: ASTHMA
  14. PHENERGAN [Concomitant]
     Indication: NAUSEA
     Dosage: UNK
  15. PROBIOTIC (UNK INGREDIENTS) [Concomitant]
     Indication: ASTHMA
  16. ZOFRAN [Concomitant]
     Indication: NAUSEA
     Dosage: UNK
  17. PULMICORT [Concomitant]
     Indication: ASTHMA
     Dosage: UNK
  18. ZYRTEC [Concomitant]
     Indication: HYPERSENSITIVITY
     Route: 048
     Dates: start: 20090101
  19. CELEXA [Concomitant]
     Indication: DEPRESSION
  20. VITAMIN AND MINERAL PRENATAL SUPPLEMENT W/ FOLIC ACID CAP [Concomitant]
     Indication: PREGNANCY
     Dosage: UNK
  21. DOCUSATE SODIUM/SENNOSIDES [Concomitant]
     Indication: CONSTIPATION
     Route: 048
     Dates: start: 20100101
  22. ACETAMINOPHEN [Concomitant]
     Indication: HEADACHE
     Route: 048
     Dates: start: 20110901

REACTIONS (3)
  - ABORTION SPONTANEOUS [None]
  - VENTRICULAR EXTRASYSTOLES [None]
  - MATERNAL EXPOSURE DURING PREGNANCY [None]
